FAERS Safety Report 8033494-3 (Version None)
Quarter: 2012Q1

REPORT INFORMATION
  Report Type: 
  Country: None (occurrence: None)
  Receive Date: 20120110
  Receipt Date: 20120105
  Transmission Date: 20120608
  Serious: Yes (Other)
  Sender: FDA-Public Use
  Company Number: GB-ROCHE-800782

PATIENT
  Sex: Male
  Weight: 105 kg

DRUGS (5)
  1. ACTEMRA [Suspect]
     Indication: RHEUMATOID ARTHRITIS
     Route: 042
     Dates: start: 20110317, end: 20110624
  2. QUESTRAN [Concomitant]
     Dosage: ONCE DAILY
     Route: 048
  3. COLOFAC [Concomitant]
     Route: 048
  4. IBUPROFEN [Concomitant]
     Route: 048
  5. LANSOPRAZOLE [Concomitant]
     Dosage: ONCE DAILY
     Route: 048

REACTIONS (1)
  - TENDONITIS [None]
